FAERS Safety Report 5509904-X (Version None)
Quarter: 2007Q4

REPORT INFORMATION
  Report Type: 
  Country: None (occurrence: None)
  Receive Date: 20071108
  Receipt Date: 20071105
  Transmission Date: 20080405
  Serious: Yes (Hospitalization)
  Sender: FDA-Public Use
  Company Number: BR-AVENTIS-200720050GDDC

PATIENT
  Age: 24 Year
  Sex: Female
  Weight: 47 kg

DRUGS (5)
  1. LANTUS [Suspect]
     Route: 058
     Dates: start: 20060101
  2. OPTIPEN (INSULIN PUMP) [Suspect]
     Dates: start: 20060101, end: 20070901
  3. BACTRIM [Concomitant]
     Route: 048
     Dates: start: 20070701
  4. HUMALOG [Concomitant]
     Dosage: DOSE: ACCORDING TO GLYCEMIA
     Route: 058
     Dates: start: 20030101
  5. GLIFAGE [Concomitant]
     Route: 048
     Dates: start: 20070501

REACTIONS (7)
  - HEADACHE [None]
  - HYPERGLYCAEMIA [None]
  - KETOACIDOSIS [None]
  - MALAISE [None]
  - NO ADVERSE DRUG REACTION [None]
  - PHARMACEUTICAL PRODUCT COMPLAINT [None]
  - SYNCOPE [None]
